FAERS Safety Report 20757079 (Version 1)
Quarter: 2022Q2

REPORT INFORMATION
  Report Type: Spontaneous
  Country: US (occurrence: None)
  Receive Date: 20220427
  Receipt Date: 20220427
  Transmission Date: 20220721
  Serious: Yes (Other)
  Sender: FDA-Public Use
  Company Number: None

PATIENT
  Age: 68 Year
  Sex: Female
  Weight: 78 kg

DRUGS (8)
  1. BEBTELOVIMAB [Suspect]
     Active Substance: BEBTELOVIMAB
     Indication: COVID-19
     Dosage: OTHER FREQUENCY : ONCE;?OTHER ROUTE : IV PUSH OVER 30 SECONDS;?
     Route: 050
     Dates: start: 20220422, end: 20220422
  2. KETOROLAC [Concomitant]
     Active Substance: KETOROLAC TROMETHAMINE
     Dates: start: 20220422, end: 20220422
  3. ONDANSETRON [Concomitant]
     Active Substance: ONDANSETRON
     Dates: start: 20220422
  4. METOCLOPRAMIDE [Concomitant]
     Active Substance: METOCLOPRAMIDE
     Dates: start: 20220424, end: 20220424
  5. HYDROMORPHONE [Concomitant]
     Active Substance: HYDROMORPHONE
     Dates: start: 20220424, end: 20220425
  6. DIPHENHYDRAMINE [Concomitant]
     Active Substance: DIPHENHYDRAMINE
     Dates: start: 20220424, end: 20220424
  7. CODEINE-GUAIFENESIN [Concomitant]
     Active Substance: CODEINE PHOSPHATE\GUAIFENESIN
     Dates: start: 2022, end: 2022
  8. POTASSIUM CHLORIDE [Concomitant]
     Active Substance: POTASSIUM CHLORIDE
     Dates: start: 2022

REACTIONS (11)
  - COVID-19 [None]
  - Hyperventilation [None]
  - Pain [None]
  - Nausea [None]
  - Vomiting [None]
  - Blood pressure increased [None]
  - Chest pain [None]
  - Pyrexia [None]
  - Dyspnoea exertional [None]
  - Cough [None]
  - Colitis [None]

NARRATIVE: CASE EVENT DATE: 20220424
